FAERS Safety Report 4746489-X (Version None)
Quarter: 2005Q3

REPORT INFORMATION
  Report Type: 
  Country: None (occurrence: None)
  Receive Date: 20050817
  Receipt Date: 20050804
  Transmission Date: 20060218
  Serious: Yes (Hospitalization)
  Sender: FDA-Public Use
  Company Number: US-JNJFOC-20050801962

PATIENT
  Sex: Female

DRUGS (15)
  1. INFLIXIMAB [Suspect]
     Indication: RHEUMATOID ARTHRITIS
     Route: 042
  2. ALLEGRA [Concomitant]
  3. ASPIRIN [Concomitant]
  4. CALCIUM WITH VITAMIN D [Concomitant]
  5. CALCIUM WITH VITAMIN D [Concomitant]
  6. CALCIUM WITH VITAMIN D [Concomitant]
  7. DOXEPIN HCL [Concomitant]
  8. FOLIC ACID [Concomitant]
  9. MEHTOTREXATE [Concomitant]
  10. NAPROSYN [Concomitant]
  11. PREDNISONE [Concomitant]
  12. TAGAMET [Concomitant]
  13. TOPROL-XL [Concomitant]
  14. TYLENOL (CAPLET) [Concomitant]
  15. ZOCOR [Concomitant]

REACTIONS (3)
  - ATRIAL FIBRILLATION [None]
  - HYPOTENSION [None]
  - MYOCARDIAL INFARCTION [None]
